FAERS Safety Report 4715741-6 (Version None)
Quarter: 2005Q2

REPORT INFORMATION
  Report Type: 
  Country: None (occurrence: None)
  Receive Date: 20050629
  Receipt Date: 20050510
  Transmission Date: 20051028
  Serious: No
  Sender: FDA-Public Use
  Company Number: SP00438

PATIENT
  Age: 77 Year
  Sex: Female
  Weight: 51.7101 kg

DRUGS (5)
  1. XIFAXAN [Suspect]
     Indication: GASTROINTESTINAL INFECTION
     Dosage: 200MG/TID, ORAL
     Route: 048
     Dates: start: 20050412, end: 20050414
  2. NORVASC(UNKNOWN) [Concomitant]
  3. COZAAR(UNKNOWN) [Concomitant]
  4. AZULFIDINE(UNKNOWN) [Concomitant]
  5. FOLIC ACID(UNKNOWN) [Concomitant]

REACTIONS (6)
  - DIARRHOEA HAEMORRHAGIC [None]
  - DYSPHONIA [None]
  - HYPOTENSION [None]
  - PYREXIA [None]
  - VISUAL DISTURBANCE [None]
  - WEIGHT DECREASED [None]
